FAERS Safety Report 9737802 (Version 2)
Quarter: 2014Q4

REPORT INFORMATION
  Report Type: Spontaneous
  Country: US (occurrence: US)
  Receive Date: 20131208
  Receipt Date: 20141121
  Transmission Date: 20150529
  Serious: No
  Sender: FDA-Public Use
  Company Number: US-SA-2013SA094696

PATIENT
  Age: 8 Year
  Sex: Male

DRUGS (5)
  1. EPOGEN [Concomitant]
     Active Substance: ERYTHROPOIETIN
     Dosage: DOSE:1500 UNIT(S)
  2. DEPAKOTE [Concomitant]
     Active Substance: DIVALPROEX SODIUM
  3. RENVELA [Suspect]
     Active Substance: SEVELAMER CARBONATE
     Indication: HYPERPHOSPHATAEMIA
     Dosage: 2X 800 MG; 3 TIMES PER DAY WITH MEALS
     Route: 048
     Dates: start: 201309, end: 20140128
  4. TYLENOL [Concomitant]
     Active Substance: ACETAMINOPHEN
  5. HEPARIN [Concomitant]
     Active Substance: HEPARIN SODIUM
     Dosage: DOSE:500 UNIT(S)

REACTIONS (2)
  - Drug ineffective [Unknown]
  - Wrong technique in drug usage process [Unknown]

NARRATIVE: CASE EVENT DATE: 201309
